FAERS Safety Report 8593815-X (Version None)
Quarter: 2012Q3

REPORT INFORMATION
  Report Type: 
  Country: None (occurrence: None)
  Receive Date: 20120814
  Receipt Date: 20120809
  Transmission Date: 20120928
  Serious: Yes (Hospitalization, Other)
  Sender: FDA-Public Use
  Company Number: BR-ROCHE-728336

PATIENT
  Sex: Female
  Weight: 45 kg

DRUGS (11)
  1. MABTHERA [Suspect]
     Dosage: ROUTE: ENDOVENOUS; DOSE: 500/ 50 ML; SECOND CYCLE
     Route: 042
     Dates: start: 20100708, end: 20100802
  2. MABTHERA [Suspect]
     Indication: RHEUMATOID ARTHRITIS
     Dosage: ROUTE: ENDOVENOUS; DOSE: 500/ 50 ML; FIRST CYCLE; FORM: INFUSION
     Route: 042
     Dates: start: 20091001, end: 20091007
  3. METOPROLOL SUCCINATE [Concomitant]
     Indication: HYPERTENSION
  4. MELOXICAM [Concomitant]
  5. OMEPRAZOLE [Concomitant]
  6. MABTHERA [Suspect]
  7. ATACAND [Concomitant]
  8. RANITIDINE [Concomitant]
  9. PREDNISONE TAB [Concomitant]
  10. CALCIUM [Concomitant]
  11. CELEBREX [Concomitant]

REACTIONS (5)
  - SINUSITIS [None]
  - IMMUNODEFICIENCY [None]
  - WEIGHT DECREASED [None]
  - BLOOD PRESSURE INCREASED [None]
  - SCAR [None]
